FAERS Safety Report 7404870-4 (Version None)
Quarter: 2011Q2

REPORT INFORMATION
  Report Type: 
  Country: None (occurrence: None)
  Receive Date: 20110411
  Receipt Date: 20110401
  Transmission Date: 20111010
  Serious: Yes (Other)
  Sender: FDA-Public Use
  Company Number: US-US-EMD SERONO, INC.-7051697

PATIENT
  Sex: Female

DRUGS (5)
  1. WELLBUTRIN [Concomitant]
     Indication: DEPRESSION
  2. SYNTHROID [Concomitant]
     Indication: AUTOIMMUNE THYROIDITIS
  3. CARDIZEM CD [Concomitant]
     Indication: HYPERTENSION
  4. REBIF [Suspect]
     Indication: MULTIPLE SCLEROSIS
     Route: 058
     Dates: start: 20101230
  5. HYDROCHLOROTHIAZIDE [Concomitant]
     Indication: HYPERTENSION

REACTIONS (2)
  - PNEUMONIA [None]
  - INJECTION SITE ERYTHEMA [None]
